FAERS Safety Report 9924829 (Version 1)
Quarter: 2014Q1

REPORT INFORMATION
  Report Type: Spontaneous
  Country: US (occurrence: None)
  Receive Date: 20140224
  Receipt Date: 20140224
  Transmission Date: 20141002
  Serious: No
  Sender: FDA-Public Use
  Company Number: None

PATIENT
  Age: 59 Year
  Sex: Female
  Weight: 53.52 kg

DRUGS (1)
  1. COPAXONE [Suspect]
     Indication: MULTIPLE SCLEROSIS
     Dates: start: 20140206

REACTIONS (7)
  - Flushing [None]
  - Back pain [None]
  - Nausea [None]
  - Malaise [None]
  - Nasal congestion [None]
  - Chest discomfort [None]
  - Throat tightness [None]
